FAERS Safety Report 21089008 (Version 4)
Quarter: 2022Q3

REPORT INFORMATION
  Report Type: Report from Study
  Country: US (occurrence: US)
  Receive Date: 20220715
  Receipt Date: 20220922
  Transmission Date: 20221027
  Serious: No
  Sender: FDA-Public Use
  Company Number: US-BIOVITRUM-2022US08733

PATIENT
  Sex: Female

DRUGS (12)
  1. KINERET [Suspect]
     Active Substance: ANAKINRA
     Indication: Product used for unknown indication
     Dates: start: 20220702
  2. HYDROCODONE [Concomitant]
     Active Substance: HYDROCODONE
     Dosage: AS NEEDED
  3. CHLORMEZANONE [Concomitant]
     Active Substance: CHLORMEZANONE
     Dosage: AS NEEDED
  4. COUMADIN [Concomitant]
     Active Substance: WARFARIN SODIUM
  5. LYRICA [Concomitant]
     Active Substance: PREGABALIN
  6. MAGNESIUM [Concomitant]
     Active Substance: MAGNESIUM
  7. VITAMIN D NOS [Concomitant]
     Active Substance: VITAMIN D NOS
  8. PREDNISONE [Concomitant]
     Active Substance: PREDNISONE
  9. VERAPAMIL [Concomitant]
     Active Substance: VERAPAMIL HYDROCHLORIDE
  10. COLCHICINE [Concomitant]
     Active Substance: COLCHICINE
  11. CALCIUM [Concomitant]
     Active Substance: CALCIUM
  12. FENTANYL TRANSDERMAL SYSTEM [Concomitant]
     Active Substance: FENTANYL

REACTIONS (6)
  - Joint swelling [Unknown]
  - Peripheral swelling [Unknown]
  - Pain in extremity [Unknown]
  - Oedema [Unknown]
  - Injection site bruising [Unknown]
  - Drug ineffective [Unknown]
